FAERS Safety Report 9691253 (Version 1)
Quarter: 2013Q4

REPORT INFORMATION
  Report Type: Spontaneous
  Country: BR (occurrence: BR)
  Receive Date: 20131115
  Receipt Date: 20131115
  Transmission Date: 20140711
  Serious: Yes (Other)
  Sender: FDA-Public Use
  Company Number: PHHY2013BR130753

PATIENT
  Age: 88 Year
  Sex: Female

DRUGS (1)
  1. DIOVAN [Suspect]
     Indication: HYPERTENSION
     Dosage: 1 DF, (320 MG) A DAY
     Route: 048

REACTIONS (2)
  - Depression [Recovering/Resolving]
  - Dizziness [Recovering/Resolving]
